FAERS Safety Report 13110085 (Version 1)
Quarter: 2017Q1

REPORT INFORMATION
  Report Type: Spontaneous
  Country: US (occurrence: US)
  Receive Date: 20170112
  Receipt Date: 20170112
  Transmission Date: 20170428
  Serious: Yes (Other)
  Sender: FDA-Public Use
  Company Number: US-ROCHE-1100526

PATIENT
  Age: 40 Year
  Sex: Male

DRUGS (4)
  1. ACTIVASE [Suspect]
     Active Substance: ALTEPLASE
     Indication: ACUTE MYOCARDIAL INFARCTION
     Route: 065
  2. NITROGLYCERIN DRIP [Concomitant]
     Route: 060
  3. MORPHINE [Concomitant]
     Active Substance: MORPHINE
  4. ASPIRIN. [Concomitant]
     Active Substance: ASPIRIN

REACTIONS (3)
  - Ventricular extrasystoles [Recovered/Resolved]
  - Dyspnoea [Unknown]
  - Blood pressure decreased [Recovered/Resolved]
